FAERS Safety Report 4584688-0 (Version None)
Quarter: 2005Q1

REPORT INFORMATION
  Report Type: 
  Country: None (occurrence: None)
  Receive Date: 20050211
  Receipt Date: 20050204
  Transmission Date: 20050727
  Serious: Yes (Death, Hospitalization, Other)
  Sender: FDA-Public Use
  Company Number: KII-2005-0015080

PATIENT
  Age: 42 Year
  Sex: Female

DRUGS (1)
  1. MORPHINE SULFATE [Suspect]
     Dosage: ORAL
     Route: 048

REACTIONS (22)
  - ABDOMINAL DISTENSION [None]
  - ALANINE AMINOTRANSFERASE INCREASED [None]
  - ASPARTATE AMINOTRANSFERASE INCREASED [None]
  - BLOOD CREATINE PHOSPHOKINASE MB INCREASED [None]
  - BLOOD GLUCOSE INCREASED [None]
  - BLOOD LACTIC ACID INCREASED [None]
  - BLOOD PH DECREASED [None]
  - BOWEL SOUNDS ABNORMAL [None]
  - BRAIN DEATH [None]
  - COMA [None]
  - CONFUSIONAL STATE [None]
  - CONVULSION [None]
  - DIABETIC KETOACIDOSIS [None]
  - DRUG ABUSER [None]
  - DRUG SCREEN POSITIVE [None]
  - DYSPNOEA [None]
  - HYPOTENSION [None]
  - MYDRIASIS [None]
  - NIGHTMARE [None]
  - PUPIL FIXED [None]
  - SELF-MEDICATION [None]
  - SOMNOLENCE [None]
